FAERS Safety Report 10411397 (Version 2)
Quarter: 2014Q3

REPORT INFORMATION
  Report Type: Spontaneous
  Country: US (occurrence: US)
  Receive Date: 20140827
  Receipt Date: 20140827
  Transmission Date: 20150326
  Serious: Yes (Other)
  Sender: FDA-Public Use
  Company Number: US-JNJCP-30000236468

PATIENT
  Sex: Female

DRUGS (1)
  1. JOHNSONS BABY PRODUCTS [Suspect]
     Active Substance: UNSPECIFIED INGREDIENT
     Route: 061

REACTIONS (3)
  - Ovarian cancer [Unknown]
  - Drug administered at inappropriate site [Unknown]
  - Fallopian tube cancer [Unknown]

NARRATIVE: CASE EVENT DATE: 2007
